FAERS Safety Report 21757577 (Version 2)
Quarter: 2022Q4

REPORT INFORMATION
  Report Type: Spontaneous
  Country: US (occurrence: US)
  Receive Date: 20221221
  Receipt Date: 20221227
  Transmission Date: 20230112
  Serious: No
  Sender: FDA-Public Use
  Company Number: US-SA-SAC20221216001625

PATIENT
  Sex: Female
  Weight: 106.5 kg

DRUGS (30)
  1. DUPIXENT [Suspect]
     Active Substance: DUPILUMAB
     Indication: Hypogammaglobulinaemia
     Dosage: 300 MG, QOW
     Route: 058
  2. DUPIXENT [Suspect]
     Active Substance: DUPILUMAB
     Indication: Asthma
  3. GAMMAGARD [Concomitant]
     Active Substance: HUMAN IMMUNOGLOBULIN G
  4. ASPIRIN [Concomitant]
     Active Substance: ASPIRIN
  5. .ALPHA.-TOCOPHEROL [Concomitant]
     Active Substance: .ALPHA.-TOCOPHEROL
  6. ALBUTEROL [Concomitant]
     Active Substance: ALBUTEROL
  7. FLUTICASONE PROPIONATE [Concomitant]
     Active Substance: FLUTICASONE PROPIONATE
  8. SYNTHROID [Concomitant]
     Active Substance: LEVOTHYROXINE SODIUM
  9. FUROSEMIDE [Concomitant]
     Active Substance: FUROSEMIDE
  10. PREDNISONE [Concomitant]
     Active Substance: PREDNISONE
  11. FEXOFENADINE HCL [Concomitant]
     Active Substance: FEXOFENADINE HYDROCHLORIDE
  12. BENEFIBER [WHEAT DEXTRIN] [Concomitant]
  13. TYLENOL PM EXTRA STRENGTH [Concomitant]
     Active Substance: ACETAMINOPHEN\DIPHENHYDRAMINE HYDROCHLORIDE
  14. TYLENOL ARTHRITIS PAIN [Concomitant]
     Active Substance: ACETAMINOPHEN
  15. SINGULAIR [Concomitant]
     Active Substance: MONTELUKAST SODIUM
  16. CALCIUM\CHOLECALCIFEROL [Concomitant]
     Active Substance: CALCIUM\CHOLECALCIFEROL
  17. VITAMIN D2 [Concomitant]
     Active Substance: ERGOCALCIFEROL
  18. TOBRAMYCIN [Concomitant]
     Active Substance: TOBRAMYCIN
  19. MUCINEX [Concomitant]
     Active Substance: GUAIFENESIN
  20. MIRALAX [Concomitant]
     Active Substance: POLYETHYLENE GLYCOL 3350
  21. MELATONIN [Concomitant]
     Active Substance: MELATONIN
  22. LOSARTAN POTASSIUM [Concomitant]
     Active Substance: LOSARTAN POTASSIUM
  23. INCRUSE ELLIPTA [Concomitant]
     Active Substance: UMECLIDINIUM BROMIDE
  24. DULERA [Concomitant]
     Active Substance: FORMOTEROL FUMARATE DIHYDRATE\MOMETASONE FUROATE
  25. BENADRYL [Concomitant]
     Active Substance: DIPHENHYDRAMINE HYDROCHLORIDE
  26. AZELASTINE HYDROCHLORIDE [Concomitant]
     Active Substance: AZELASTINE HYDROCHLORIDE
  27. ATORVASTATIN CALCIUM [Concomitant]
     Active Substance: ATORVASTATIN CALCIUM
  28. CELECOXIB [Concomitant]
     Active Substance: CELECOXIB
  29. NEXIUM I.V. [Concomitant]
     Active Substance: ESOMEPRAZOLE SODIUM
  30. ACIDOPHILUS [Concomitant]
     Active Substance: LACTOBACILLUS ACIDOPHILUS

REACTIONS (2)
  - Gingivitis [Recovering/Resolving]
  - Product use in unapproved indication [Unknown]
